FAERS Safety Report 9064834 (Version 3)
Quarter: 2013Q2

REPORT INFORMATION
  Report Type: Spontaneous
  Country: US (occurrence: US)
  Receive Date: 20130213
  Receipt Date: 20130618
  Transmission Date: 20140414
  Serious: No
  Sender: FDA-Public Use
  Company Number: US-ELI_LILLY_AND_COMPANY-US201302001950

PATIENT
  Sex: Male
  Weight: 84.81 kg

DRUGS (3)
  1. AXIRON [Suspect]
     Indication: BLOOD TESTOSTERONE DECREASED
     Dosage: 120 MG, QD
     Dates: start: 201204
  2. VYTORIN [Concomitant]
     Indication: BLOOD CHOLESTEROL
  3. LOVAZA [Concomitant]

REACTIONS (2)
  - Ocular hyperaemia [Recovered/Resolved]
  - Application site pain [Recovered/Resolved]
